FAERS Safety Report 25356486 (Version 1)
Quarter: 2025Q2

REPORT INFORMATION
  Report Type: Report from Study
  Country: GB (occurrence: GB)
  Receive Date: 20250526
  Receipt Date: 20250526
  Transmission Date: 20250716
  Serious: Yes (Other)
  Sender: JOHNSON AND JOHNSON
  Company Number: GB-JNJFOC-20250526153

PATIENT
  Age: 66 Year
  Sex: Female

DRUGS (1)
  1. SIMPONI [Suspect]
     Active Substance: GOLIMUMAB
     Indication: Psoriatic arthropathy
     Dosage: STRENGTH:  50MG/0.5M
     Route: 058

REACTIONS (1)
  - Clostridium difficile colitis [Unknown]

NARRATIVE: CASE EVENT DATE: 20250516
